FAERS Safety Report 5488263-5 (Version None)
Quarter: 2007Q4

REPORT INFORMATION
  Report Type: 
  Country: None (occurrence: None)
  Receive Date: 20071017
  Receipt Date: 20071005
  Transmission Date: 20080405
  Serious: Yes (Hospitalization)
  Sender: FDA-Public Use
  Company Number: FR-ROCHE-523570

PATIENT
  Age: 67 Year
  Sex: Female

DRUGS (6)
  1. RIVOTRIL [Suspect]
     Indication: NEURALGIA
     Dosage: DOSAGE REGIMEN: 5 DOSES DAILY.
     Route: 048
  2. DEROXAT [Suspect]
     Indication: DEPRESSION
     Dosage: DOSAGE REGIMEN: 1 DOSE DAILY.
     Route: 048
     Dates: start: 20060801
  3. FRAXIPARINE [Suspect]
     Indication: HAEMORRHAGE INTRACRANIAL
     Dosage: FORM: INJECTABLE SOLUTION. DOSAGE REGIMEN: 2.8 KUI DAILY.
     Route: 058
     Dates: start: 20060726, end: 20060815
  4. INEXIUM [Suspect]
     Indication: DRUG USE FOR UNKNOWN INDICATION
     Dosage: DOSAGE REGIMEN: 1 DOSE DAILY.
     Route: 048
  5. DAFALGAN [Suspect]
     Indication: DRUG USE FOR UNKNOWN INDICATION
     Dosage: DOSAGE REGIMEN: 6 DOSES DAILY.
     Route: 048
  6. TARDYFERON [Suspect]
     Indication: ANAEMIA
     Route: 048

REACTIONS (4)
  - APHASIA [None]
  - GAZE PALSY [None]
  - HAEMATOMA [None]
  - HEMIPLEGIA [None]
